FAERS Safety Report 9019898 (Version 1)
Quarter: 2013Q1

REPORT INFORMATION
  Report Type: Spontaneous
  Country: GB (occurrence: GB)
  Receive Date: 20130118
  Receipt Date: 20130118
  Transmission Date: 20140127
  Serious: Yes (Hospitalization)
  Sender: FDA-Public Use
  Company Number: GB-SANOFI-AVENTIS-2013SA002590

PATIENT
  Age: 49 Year
  Sex: Female
  Weight: 88.8 kg

DRUGS (5)
  1. OXALIPLATIN [Suspect]
     Indication: PRODUCT USED FOR UNKNOWN INDICATION
     Route: 065
     Dates: start: 20130102, end: 20130102
  2. CALCIUM FOLINATE [Suspect]
     Indication: PRODUCT USED FOR UNKNOWN INDICATION
     Route: 065
     Dates: start: 20130102, end: 20130102
  3. CHLORPHENAMINE [Concomitant]
  4. HYDROCORTISONE [Concomitant]
     Route: 042
  5. TEICOPLANIN [Concomitant]
     Route: 042

REACTIONS (3)
  - Cold sweat [Recovered/Resolved]
  - Chills [Recovered/Resolved]
  - Chills [Recovered/Resolved]
